FAERS Safety Report 8368875-1 (Version None)
Quarter: 2012Q2

REPORT INFORMATION
  Report Type: 
  Country: None (occurrence: None)
  Receive Date: 20120516
  Receipt Date: 20120501
  Transmission Date: 20120825
  Serious: Yes (Hospitalization)
  Sender: FDA-Public Use
  Company Number: UTC-018314

PATIENT
  Age: 3 Year
  Sex: Female
  Weight: 15.6 kg

DRUGS (4)
  1. REVATIO [Concomitant]
  2. TRACLEER [Concomitant]
  3. REMODULIN [Suspect]
     Indication: PULMONARY ARTERIAL HYPERTENSION
     Dosage: 28.152 UG/KG (0.01955 UG/KG, 1 IN 1 MIN), INTRAVENOUS
     Route: 042
     Dates: start: 20120309
  4. DIURETICS (DIURETICS) [Concomitant]

REACTIONS (2)
  - PNEUMONIA [None]
  - RESPIRATORY DISORDER [None]
